FAERS Safety Report 23172853 (Version 1)
Quarter: 2023Q4

REPORT INFORMATION
  Report Type: Spontaneous
  Country: US (occurrence: US)
  Receive Date: 20231110
  Receipt Date: 20231110
  Transmission Date: 20240110
  Serious: No
  Sender: FDA-Public Use
  Company Number: US-UPSHER-SMITH LABORATORIES, LLC-2023USL00598

PATIENT
  Age: 68 Year
  Sex: Male
  Weight: 83.9 kg

DRUGS (4)
  1. JANTOVEN [Suspect]
     Active Substance: WARFARIN SODIUM
     Indication: Coagulopathy
     Dosage: 5 MG, 6X/WEEK
     Dates: start: 20210215, end: 20230530
  2. JANTOVEN [Suspect]
     Active Substance: WARFARIN SODIUM
     Indication: Deep vein thrombosis
     Dosage: 2.5 MG, 1X/WEEK ON MONDAYS
     Dates: start: 20210215, end: 20230530
  3. JANTOVEN [Suspect]
     Active Substance: WARFARIN SODIUM
     Indication: Thrombophlebitis
     Dosage: 5 MG, 6X/WEEK
     Dates: start: 20230602, end: 20230607
  4. JANTOVEN [Suspect]
     Active Substance: WARFARIN SODIUM
     Dosage: 2.5 MG, 1X/WEEK ON MONDAYS
     Dates: start: 20230602, end: 20230607

REACTIONS (7)
  - Hypoaesthesia [Not Recovered/Not Resolved]
  - Hypotonia [Not Recovered/Not Resolved]
  - Paraesthesia [Recovering/Resolving]
  - Dry skin [Recovering/Resolving]
  - Insomnia [Recovering/Resolving]
  - Pruritus [Recovering/Resolving]
  - Product dispensing issue [Recovered/Resolved]
